FAERS Safety Report 4625363-3 (Version None)
Quarter: 2005Q2

REPORT INFORMATION
  Report Type: 
  Country: None (occurrence: None)
  Receive Date: 20050401
  Receipt Date: 20050325
  Transmission Date: 20051028
  Serious: Yes (Hospitalization)
  Sender: FDA-Public Use
  Company Number: FR-GLAXOSMITHKLINE-B0376296A

PATIENT
  Age: 59 Year
  Sex: Male

DRUGS (3)
  1. AUGMENTIN '125' [Suspect]
     Indication: ANTIBACTERIAL PROPHYLAXIS
     Dosage: 2G SINGLE DOSE
     Route: 042
     Dates: start: 20050228, end: 20050228
  2. ORACILLINE [Concomitant]
     Route: 065
  3. PRIMAXIN [Concomitant]
     Route: 065
     Dates: start: 20050302

REACTIONS (5)
  - ERYTHEMA [None]
  - EYELID OEDEMA [None]
  - PURPURA [None]
  - PYREXIA [None]
  - TOXIC SKIN ERUPTION [None]
